FAERS Safety Report 25462813 (Version 4)
Quarter: 2025Q4

REPORT INFORMATION
  Report Type: Report from Study
  Country: TR (occurrence: TR)
  Receive Date: 20250620
  Receipt Date: 20251212
  Transmission Date: 20260118
  Serious: Yes (Other)
  Sender: ALEXION PHARMACEUTICALS
  Company Number: TR-ALXN-202401TUR002160TR

PATIENT
  Sex: Male
  Weight: 59 kg

DRUGS (4)
  1. SOLIRIS [Suspect]
     Active Substance: ECULIZUMAB
     Indication: Atypical haemolytic uraemic syndrome
     Dosage: 900 MILLIGRAM, Q2W
     Dates: start: 20240102
  2. SOLIRIS [Suspect]
     Active Substance: ECULIZUMAB
     Dosage: 900 MILLIGRAM, Q3W
     Dates: start: 20240709
  3. SOLIRIS [Suspect]
     Active Substance: ECULIZUMAB
     Dosage: 1200 MILLIGRAM, Q2W
  4. SOLIRIS [Suspect]
     Active Substance: ECULIZUMAB
     Dosage: 900 MILLIGRAM, Q3W

REACTIONS (6)
  - Epilepsy [Unknown]
  - Blood creatinine increased [Unknown]
  - Nasopharyngitis [Unknown]
  - Vomiting [Unknown]
  - Drug ineffective [Unknown]
  - Off label use [Unknown]
